FAERS Safety Report 6000076-4 (Version None)
Quarter: 2008Q4

REPORT INFORMATION
  Report Type: 
  Country: None (occurrence: None)
  Receive Date: 20081215
  Receipt Date: 20081204
  Transmission Date: 20090506
  Serious: Yes (Hospitalization)
  Sender: FDA-Public Use
  Company Number: B0549071A

PATIENT
  Age: 23 Year
  Sex: Female

DRUGS (6)
  1. AUGMENTIN '125' [Suspect]
     Indication: DRUG USE FOR UNKNOWN INDICATION
     Route: 048
     Dates: start: 20081114, end: 20081115
  2. NORAMIDOPYRINE [Suspect]
     Indication: NASOPHARYNGITIS
     Route: 048
     Dates: start: 20081111, end: 20081114
  3. SURGAM [Suspect]
     Route: 048
     Dates: start: 20081114, end: 20081115
  4. CHLORPHENTERMINE 65MG TAB [Concomitant]
     Indication: NASOPHARYNGITIS
     Route: 065
  5. ACETAMINOPHEN [Concomitant]
     Indication: NASOPHARYNGITIS
     Route: 065
  6. PSEUDOEPHEDRINE HCL [Concomitant]
     Indication: NASOPHARYNGITIS
     Route: 065

REACTIONS (3)
  - PURPURA [None]
  - RASH MACULO-PAPULAR [None]
  - TRANSAMINASES INCREASED [None]
